FAERS Safety Report 15249351 (Version 1)
Quarter: 2018Q3

REPORT INFORMATION
  Report Type: Spontaneous
  Country: US (occurrence: US)
  Receive Date: 20180807
  Receipt Date: 20180807
  Transmission Date: 20181010
  Serious: No
  Sender: FDA-Public Use
  Company Number: US-PERRIGO-17US031424

PATIENT
  Age: 36 Year
  Sex: Female
  Weight: 77.55 kg

DRUGS (7)
  1. LORATADINE. [Suspect]
     Active Substance: LORATADINE
     Indication: ACCIDENTAL EXPOSURE TO PRODUCT
     Dosage: 10 MG, QD
     Route: 048
     Dates: end: 20171214
  2. EPIPEN [Concomitant]
     Active Substance: EPINEPHRINE
     Indication: HYPERSENSITIVITY
     Dosage: UNKNOWN, UNKNOWN
     Route: 065
  3. LORATADINE. [Suspect]
     Active Substance: LORATADINE
     Indication: HYPERSENSITIVITY
     Dosage: 10 MG, QD
     Route: 048
     Dates: end: 201712
  4. LORATADINE. [Suspect]
     Active Substance: LORATADINE
     Indication: ACCIDENTAL EXPOSURE TO PRODUCT
     Dosage: 10 MG, QD
     Route: 048
     Dates: start: 201712
  5. PANTOPRAZOLE [Concomitant]
     Active Substance: PANTOPRAZOLE
     Indication: GASTROOESOPHAGEAL REFLUX DISEASE
     Dosage: 40 MG, UNKNOWN
     Route: 065
  6. SUMATRIPTAN. [Concomitant]
     Active Substance: SUMATRIPTAN
     Indication: MIGRAINE
     Dosage: UNKNOWN, UNKNOWN
     Route: 065
  7. SINGULAIR [Concomitant]
     Active Substance: MONTELUKAST SODIUM
     Indication: HYPERSENSITIVITY
     Dosage: UNKNOWN, UNKNOWN
     Route: 065

REACTIONS (5)
  - Dizziness [Not Recovered/Not Resolved]
  - Palpitations [Not Recovered/Not Resolved]
  - Visual impairment [Not Recovered/Not Resolved]
  - Headache [Not Recovered/Not Resolved]
  - Flushing [Not Recovered/Not Resolved]

NARRATIVE: CASE EVENT DATE: 20171207
